FAERS Safety Report 7701918-4 (Version None)
Quarter: 2011Q3

REPORT INFORMATION
  Report Type: 
  Country: None (occurrence: None)
  Receive Date: 20110822
  Receipt Date: 20110817
  Transmission Date: 20111222
  Serious: Yes (Other)
  Sender: FDA-Public Use
  Company Number: GB-PFIZER INC-2011189097

PATIENT
  Age: 75 Year
  Sex: Female

DRUGS (2)
  1. LIPITOR [Suspect]
     Dosage: 20 MG, DAILY
     Dates: start: 20110606
  2. LIPITOR [Suspect]
     Dosage: 10 MG, DAILY

REACTIONS (4)
  - METAMORPHOPSIA [None]
  - BLOOD CHOLESTEROL INCREASED [None]
  - MACULAR HOLE [None]
  - SKIN IRRITATION [None]
